FAERS Safety Report 16901895 (Version 1)
Quarter: 2019Q4

REPORT INFORMATION
  Report Type: Spontaneous
  Country: IL (occurrence: IL)
  Receive Date: 20191010
  Receipt Date: 20191010
  Transmission Date: 20200122
  Serious: Yes (Hospitalization)
  Sender: FDA-Public Use
  Company Number: IL-B.I. PHARMACEUTICALS,INC./RIDGEFIELD-2019-BI-106095

PATIENT
  Age: 67 Year
  Sex: Male

DRUGS (3)
  1. PRAXBIND [Suspect]
     Active Substance: IDARUCIZUMAB
     Route: 065
  2. PRAXBIND [Suspect]
     Active Substance: IDARUCIZUMAB
     Indication: PROCOAGULANT THERAPY
     Route: 065
  3. PRAXBIND [Suspect]
     Active Substance: IDARUCIZUMAB
     Route: 065

REACTIONS (1)
  - Drug ineffective [Not Recovered/Not Resolved]
